FAERS Safety Report 5679626-3 (Version None)
Quarter: 2008Q1

REPORT INFORMATION
  Report Type: 
  Country: None (occurrence: None)
  Receive Date: 20080324
  Receipt Date: 20080310
  Transmission Date: 20080703
  Serious: Yes (Death, Hospitalization)
  Sender: FDA-Public Use
  Company Number: US-1165490

PATIENT
  Age: 84 Year
  Sex: Male

DRUGS (6)
  1. TIMOLOL MALEATE [Suspect]
     Indication: GLAUCOMA
     Dosage: OPHTHALMIC
     Route: 047
  2. ZANTAC [Concomitant]
  3. ASPIRIN [Concomitant]
  4. NEURONTIN [Concomitant]
  5. LISINOPRIL [Concomitant]
  6. MULTI-VITAMIN [Concomitant]

REACTIONS (9)
  - BLINDNESS [None]
  - DYSPHAGIA [None]
  - EYE PAIN [None]
  - FALL [None]
  - FATIGUE [None]
  - HIP FRACTURE [None]
  - MUSCULAR WEAKNESS [None]
  - PROCEDURAL PAIN [None]
  - STAPHYLOCOCCAL INFECTION [None]
